FAERS Safety Report 25047685 (Version 1)
Quarter: 2025Q1

REPORT INFORMATION
  Report Type: Spontaneous
  Country: CN (occurrence: CN)
  Receive Date: 20250306
  Receipt Date: 20250306
  Transmission Date: 20250409
  Serious: Yes (Hospitalization)
  Sender: PFIZER
  Company Number: CN-PFIZER INC-PV202500026976

PATIENT
  Age: 14 Month
  Sex: Female

DRUGS (1)
  1. ZITHROMAX [Suspect]
     Active Substance: AZITHROMYCIN DIHYDRATE
     Indication: Pneumonia
     Dosage: 0.1 G, 1X/DAY
     Route: 048
     Dates: start: 20250222, end: 20250223

REACTIONS (5)
  - Rash [Recovered/Resolved]
  - Drug eruption [Recovered/Resolved]
  - Swelling [Recovered/Resolved]
  - Dermatitis allergic [Recovered/Resolved]
  - Lung consolidation [Recovered/Resolved]

NARRATIVE: CASE EVENT DATE: 20250223
